FAERS Safety Report 10175135 (Version 1)
Quarter: 2014Q2

REPORT INFORMATION
  Report Type: Spontaneous
  Country: US (occurrence: US)
  Receive Date: 20140515
  Receipt Date: 20140515
  Transmission Date: 20141212
  Serious: Yes (Hospitalization)
  Sender: FDA-Public Use
  Company Number: PHHY2014US058210

PATIENT
  Age: 36 Year
  Sex: Male

DRUGS (2)
  1. MONTELUKAST SODIUM [Suspect]
     Indication: RHINITIS ALLERGIC
  2. ACETYLSALICYLIC ACID [Suspect]
     Dosage: 60 MG, UNK
     Route: 048

REACTIONS (1)
  - Asthma [Recovered/Resolved]
